FAERS Safety Report 9334016 (Version 1)
Quarter: 2013Q2

REPORT INFORMATION
  Report Type: Spontaneous
  Country: US (occurrence: US)
  Receive Date: 20130606
  Receipt Date: 20130606
  Transmission Date: 20140414
  Serious: No
  Sender: FDA-Public Use
  Company Number: US-AMGEN-USASP2013014129

PATIENT
  Age: 80 Year
  Sex: Female

DRUGS (4)
  1. XGEVA [Suspect]
     Indication: METASTASES TO BONE
     Dosage: UNK
     Dates: start: 20130111
  2. LISINOPRIL [Concomitant]
  3. ASPIRIN [Concomitant]
  4. VITAMIN D3 [Concomitant]

REACTIONS (5)
  - Salivary hypersecretion [Unknown]
  - Decreased appetite [Unknown]
  - Dysgeusia [Unknown]
  - Urticaria [Unknown]
  - Nausea [Unknown]
